FAERS Safety Report 23590671 (Version 1)
Quarter: 2024Q1

REPORT INFORMATION
  Report Type: Report from Study
  Country: CA (occurrence: CA)
  Receive Date: 20240304
  Receipt Date: 20240304
  Transmission Date: 20240410
  Serious: Yes (Hospitalization, Other)
  Sender: FDA-Public Use
  Company Number: CA-ABBVIE-5604931

PATIENT
  Age: 61 Year
  Sex: Male
  Weight: 75 kg

DRUGS (1)
  1. RINVOQ [Suspect]
     Active Substance: UPADACITINIB
     Indication: Crohn^s disease
     Dosage: THERE IS A STICKER OVER BOTTLE
     Route: 048
     Dates: start: 20231125, end: 20240108

REACTIONS (5)
  - Pneumonia streptococcal [Recovered/Resolved with Sequelae]
  - Immunosuppression [Unknown]
  - Respiratory distress [Unknown]
  - Influenza [Unknown]
  - Pulmonary embolism [Recovered/Resolved with Sequelae]

NARRATIVE: CASE EVENT DATE: 20231217
